FAERS Safety Report 15756910 (Version 1)
Quarter: 2018Q4

REPORT INFORMATION
  Report Type: Spontaneous
  Country: US (occurrence: US)
  Receive Date: 20181206
  Receipt Date: 20181206
  Transmission Date: 20190205
  Serious: Yes (Other)
  Sender: FDA-Public Use
  Company Number: None

PATIENT
  Age: 43 Year
  Sex: Female
  Weight: 67.9 kg

DRUGS (18)
  1. CEFAZOLIN [Concomitant]
     Active Substance: CEFAZOLIN
     Dates: start: 20181026, end: 20181026
  2. KETOROLAC [Concomitant]
     Active Substance: KETOROLAC\KETOROLAC TROMETHAMINE
     Dates: start: 20181026, end: 20181026
  3. EPHEDRINE. [Concomitant]
     Active Substance: EPHEDRINE
     Dates: start: 20181026, end: 20181026
  4. SEVOFLURANE. [Concomitant]
     Active Substance: SEVOFLURANE
     Dates: start: 20181026, end: 20181026
  5. MIDAZOLAM [Concomitant]
     Active Substance: MIDAZOLAM HYDROCHLORIDE
     Dates: start: 20181026, end: 20181026
  6. DEXMEDETOMIDINE. [Concomitant]
     Active Substance: DEXMEDETOMIDINE
     Dates: start: 20181026, end: 20181026
  7. KETAMINE [Concomitant]
     Active Substance: KETAMINE
     Dates: start: 20181026, end: 20181026
  8. DEXAMETHASONE. [Concomitant]
     Active Substance: DEXAMETHASONE
     Dates: start: 20181026, end: 20181026
  9. ROCURONIUM [Suspect]
     Active Substance: ROCURONIUM BROMIDE
     Indication: GENERAL ANAESTHESIA
     Route: 042
     Dates: start: 20181026, end: 20181026
  10. PROPOFOL. [Concomitant]
     Active Substance: PROPOFOL
     Dates: start: 20181026, end: 20181026
  11. SUGAMMADEX [Concomitant]
     Active Substance: SUGAMMADEX
     Dates: start: 20181026, end: 20181026
  12. HYDROMORPHONE [Concomitant]
     Active Substance: HYDROMORPHONE
     Dates: start: 20181026, end: 20181026
  13. RIZATRIPTAN. [Concomitant]
     Active Substance: RIZATRIPTAN
  14. FENTANYL. [Concomitant]
     Active Substance: FENTANYL
     Dates: start: 20181026, end: 20181026
  15. ROCURONIUM [Suspect]
     Active Substance: ROCURONIUM BROMIDE
     Indication: PARALYSIS
     Route: 042
     Dates: start: 20181026, end: 20181026
  16. LIDOCAINE. [Concomitant]
     Active Substance: LIDOCAINE
     Dates: start: 20181026, end: 20181026
  17. ONDANSETRON [Concomitant]
     Active Substance: ONDANSETRON
     Dates: start: 20181026, end: 20181026
  18. LACTATED RINGERS SOLUTION [Concomitant]
     Active Substance: CALCIUM CHLORIDE\POTASSIUM CHLORIDE\SODIUM CHLORIDE\SODIUM LACTATE
     Dates: start: 20181026, end: 20181026

REACTIONS (1)
  - Therapeutic response decreased [None]

NARRATIVE: CASE EVENT DATE: 20181026
